FAERS Safety Report 7191954-1 (Version None)
Quarter: 2010Q4

REPORT INFORMATION
  Report Type: 
  Country: None (occurrence: None)
  Receive Date: 20101223
  Receipt Date: 20101215
  Transmission Date: 20110411
  Serious: Yes (Other)
  Sender: FDA-Public Use
  Company Number: PHHY2010US68978

PATIENT
  Sex: Female

DRUGS (5)
  1. EXTAVIA [Suspect]
     Indication: MULTIPLE SCLEROSIS
     Dosage: 0.25 MG, QOD
     Route: 058
     Dates: start: 20091211
  2. GALENIC /ACETIC ACID/HYDROCORTISONE/ [Concomitant]
     Dosage: 10%, 1 PACKET TOPICALLY, QD
  3. TOPRAL [Concomitant]
     Dosage: 100 MG, QD
  4. ALEVE [Concomitant]
     Dosage: 200 MG, PRN
  5. MULTI-VITAMIN [Concomitant]

REACTIONS (8)
  - DEPRESSED MOOD [None]
  - FATIGUE [None]
  - FEELING ABNORMAL [None]
  - MENORRHAGIA [None]
  - MENSTRUATION IRREGULAR [None]
  - PAIN [None]
  - STRESS [None]
  - THINKING ABNORMAL [None]
